FAERS Safety Report 8010102 (Version 5)
Quarter: 2013Q2

REPORT INFORMATION
  Report Type: Spontaneous
  Country: US (occurrence: US)
  Receive Date: 20110627
  Receipt Date: 20121227
  Transmission Date: 20140414
  Serious: Yes (Other)
  Sender: FDA-Public Use
  Company Number: PHHY2011US54072

PATIENT
  Age: 6 Year
  Sex: Male

DRUGS (7)
  1. EXJADE [Suspect]
     Indication: IRON OVERLOAD
     Dosage: 375 MG, QD
     Route: 048
     Dates: start: 201101, end: 201104
  2. EXJADE [Suspect]
     Dosage: 250 MG, QD
     Route: 048
     Dates: start: 201105, end: 201106
  3. FOLIC ACID [Concomitant]
     Indication: SICKLE CELL ANAEMIA
     Dosage: 1 MG DAILY
  4. PENICILLIN [Concomitant]
     Indication: PROPHYLAXIS
     Dosage: 260 MG, BID
     Route: 048
  5. MIRALAX [Concomitant]
     Indication: CONSTIPATION
     Dosage: 170 MG, PRN
     Route: 048
     Dates: start: 20110415
  6. NSAID^S [Concomitant]
  7. ACETAMINOPHEN [Concomitant]

REACTIONS (4)
  - HEPATIC ENZYME INCREASED [Unknown]
  - TRANSAMINASES INCREASED [Unknown]
  - ASPARTATE AMINOTRANSFERASE INCREASED [Unknown]
  - ALANINE AMINOTRANSFERASE INCREASED [Unknown]
